FAERS Safety Report 16513915 (Version 1)
Quarter: 2019Q3

REPORT INFORMATION
  Report Type: Spontaneous
  Country: US (occurrence: US)
  Receive Date: 20190701
  Receipt Date: 20190701
  Transmission Date: 20191004
  Serious: No
  Sender: FDA-Public Use
  Company Number: US-ROCHE-2271811

PATIENT
  Sex: Female

DRUGS (2)
  1. KLONOPIN [Suspect]
     Active Substance: CLONAZEPAM
     Indication: PRODUCT USE IN UNAPPROVED INDICATION
     Route: 065
  2. KLONOPIN [Suspect]
     Active Substance: CLONAZEPAM
     Route: 065

REACTIONS (1)
  - Faeces soft [Not Recovered/Not Resolved]
